FAERS Safety Report 20913434 (Version 1)
Quarter: 2022Q2

REPORT INFORMATION
  Report Type: Report from Study
  Country: US (occurrence: US)
  Receive Date: 20220603
  Receipt Date: 20220603
  Transmission Date: 20220721
  Serious: Yes (Death, Life-Threatening, Hospitalization, Other)
  Sender: FDA-Public Use
  Company Number: US-GILEAD-2022-0583796

PATIENT
  Age: 65 Year
  Sex: Male
  Weight: 111.9 kg

DRUGS (40)
  1. REMDESIVIR [Suspect]
     Active Substance: REMDESIVIR
     Indication: COVID-19
     Dosage: 200 MG, ONCE (LOADING DOSE)
     Route: 042
  2. REMDESIVIR [Suspect]
     Active Substance: REMDESIVIR
     Dosage: 100 MG, QD
     Route: 042
     Dates: start: 20210611, end: 20210614
  3. ATIBUCLIMAB [Suspect]
     Active Substance: ATIBUCLIMAB
     Indication: COVID-19
     Dosage: 195 MG, QD
     Route: 042
     Dates: start: 20210611, end: 20210614
  4. ASCORBIC ACID [Concomitant]
     Active Substance: ASCORBIC ACID
     Dosage: 1000 MG
     Route: 050
     Dates: start: 20210611, end: 20210618
  5. AZITHROMYCIN [Concomitant]
     Active Substance: AZITHROMYCIN
     Indication: COVID-19
     Dosage: 500 MG
     Route: 050
     Dates: start: 20210611, end: 20210615
  6. BUDESONIDE [Concomitant]
     Active Substance: BUDESONIDE
     Dosage: 0.5 MG, BID
     Dates: start: 20210611, end: 20210618
  7. ACETAMINOPHEN [Concomitant]
     Active Substance: ACETAMINOPHEN
     Indication: COVID-19
  8. ALBUTEROL [Concomitant]
     Active Substance: ALBUTEROL
     Indication: COVID-19
  9. CEFTRIAXONE [Concomitant]
     Active Substance: CEFTRIAXONE
     Indication: COVID-19
  10. CISATRACURIUM [Concomitant]
     Active Substance: CISATRACURIUM
     Indication: COVID-19
  11. DOPAMINE [Concomitant]
     Active Substance: DOPAMINE HYDROCHLORIDE
     Indication: COVID-19
  12. EPINEPHRINE [Concomitant]
     Active Substance: EPINEPHRINE
     Indication: COVID-19
  13. HEPARIN [Concomitant]
     Active Substance: HEPARIN SODIUM
     Indication: COVID-19
  14. ALBUTEROL\IPRATROPIUM [Concomitant]
     Active Substance: ALBUTEROL\IPRATROPIUM
     Indication: COVID-19
  15. TOCILIZUMAB [Concomitant]
     Active Substance: TOCILIZUMAB
     Indication: COVID-19
  16. VANCOMYCIN [Concomitant]
     Active Substance: VANCOMYCIN
     Indication: COVID-19
  17. VASOPRESSIN [Concomitant]
     Active Substance: VASOPRESSIN
     Indication: COVID-19
  18. INTERLEUKIN NOS [Concomitant]
     Active Substance: INTERLEUKIN NOS
  19. CEFEPIME [Concomitant]
     Active Substance: CEFEPIME HYDROCHLORIDE
     Dosage: 2 G, Q8H @ 200 ML/H, IV
     Dates: start: 20210615, end: 20210617
  20. CHOLECALCIFEROL [Concomitant]
     Active Substance: CHOLECALCIFEROL
     Dosage: 5000 UNITS, QD, NJ-TUBE
     Dates: start: 20210611, end: 20210618
  21. DEXAMETHASONE [Concomitant]
     Active Substance: DEXAMETHASONE
     Dosage: 6 MG, QD
     Route: 042
     Dates: start: 20210611, end: 20210618
  22. ENOXAPARIN [Concomitant]
     Active Substance: ENOXAPARIN
     Dosage: 40 MG, Q24H, SQ
     Dates: start: 20210615, end: 20210617
  23. MIDAZOLAM [Concomitant]
     Active Substance: MIDAZOLAM
     Dosage: 1 MG/H, IV,
     Dates: start: 20210615, end: 20210618
  24. NOREPINEPHRINE [Concomitant]
     Active Substance: NOREPINEPHRINE
     Dosage: 2.5 MCG/MIN, CONTINUOUS DRIP @ 4.69 ML/H, IV
     Dates: start: 20210614, end: 20210616
  25. PHENYLEPHRINE [Concomitant]
     Active Substance: PHENYLEPHRINE HYDROCHLORIDE
     Dosage: 20 MCG/MIN, CONTINUOUS DRIP @ 15 ML/H, IV
     Dates: start: 20210615, end: 20210618
  26. VECURONIUM [Concomitant]
     Active Substance: VECURONIUM BROMIDE
     Dosage: 10 MG, ONCE
     Dates: end: 20210615
  27. MAGNESIUM SULFATE [Concomitant]
     Active Substance: MAGNESIUM SULFATE
     Dosage: 2 G/50ML, IVPB AT 50 ML/H, IV
     Dates: start: 20210615, end: 20210615
  28. MAGNESIUM SULFATE [Concomitant]
     Active Substance: MAGNESIUM SULFATE
     Dosage: 2 G/50ML, IVPB STAT AT 25 ML/H OVER 2H, INH
     Dates: start: 20210615, end: 20210615
  29. METOPROLOL [Concomitant]
     Active Substance: METOPROLOL
     Dosage: 5 MG, ONCE AT 22:00, 22:15 , 22:30
     Route: 042
     Dates: start: 20210615, end: 20210615
  30. FLAGYL [Concomitant]
     Active Substance: METRONIDAZOLE\METRONIDAZOLE HYDROCHLORIDE
     Dosage: 500 MG, Q8H
     Route: 042
     Dates: start: 20210615, end: 20210618
  31. POTASSIUM BICARBONATE/CITRIC ACID [Concomitant]
     Dosage: 20 MEQ, PRN, NJ-TUBE
     Dates: start: 20210615, end: 20210615
  32. WHITE PETROLATUM [Concomitant]
     Active Substance: PETROLATUM
     Dosage: 1 GTT DROPS, PER EYE Q6H
     Route: 061
     Dates: start: 20210615, end: 20210618
  33. ZINC SULFATE [Concomitant]
     Active Substance: ZINC SULFATE
     Dosage: 220 MG, QD NJ-TUBE
     Route: 050
     Dates: start: 20210611, end: 20210618
  34. FAMOTIDINE [Concomitant]
     Active Substance: FAMOTIDINE
     Dosage: 20 MG, BID, NJ-TUBE
     Route: 050
     Dates: start: 20210615, end: 20210618
  35. FENTANYL [Concomitant]
     Active Substance: FENTANYL
     Dosage: 25 MCG, IV BOLUS FOR INFUSION PUMP
     Route: 042
     Dates: start: 20210614, end: 20210615
  36. FENTANYL [Concomitant]
     Active Substance: FENTANYL
     Dosage: 50 MCG/ML DRIP, 1 ML/H
     Route: 042
     Dates: start: 20210614, end: 20210618
  37. FUROSEMIDE [Concomitant]
     Active Substance: FUROSEMIDE
     Dosage: 20 MG, ONCE
     Route: 042
     Dates: start: 20210615, end: 20210615
  38. HUMULIN R [Concomitant]
     Active Substance: INSULIN HUMAN
     Dosage: 2-12 UNITS, Q6H PRN, SQ
     Dates: start: 20210614, end: 20210615
  39. HUMULIN R [Concomitant]
     Active Substance: INSULIN HUMAN
     Dosage: 1 UNITS/ML DRIP, 1-28 UNITS/H, CONTINUOUS DRIP, SQ
     Dates: start: 20210615, end: 20210618
  40. OXYGEN [Concomitant]
     Active Substance: OXYGEN

REACTIONS (2)
  - Shock [Fatal]
  - International normalised ratio increased [Not Recovered/Not Resolved]

NARRATIVE: CASE EVENT DATE: 20210615
